FAERS Safety Report 9498215 (Version 2)
Quarter: 2013Q4

REPORT INFORMATION
  Report Type: Spontaneous
  Country: US (occurrence: US)
  Receive Date: 20130904
  Receipt Date: 20131001
  Transmission Date: 20140711
  Serious: Yes (Death, Hospitalization)
  Sender: FDA-Public Use
  Company Number: US-ACTELION-A-NJ2013-87937

PATIENT
  Age: 68 Year
  Sex: Male

DRUGS (2)
  1. VELETRI [Suspect]
     Indication: PULMONARY ARTERIAL HYPERTENSION
     Dosage: 26.1 NG/KG, PER MIN
     Route: 042
     Dates: start: 20100811, end: 20130709
  2. SILDENAFIL [Concomitant]

REACTIONS (4)
  - Right ventricular failure [Fatal]
  - Pulmonary hypertension [Fatal]
  - Hypoxia [Fatal]
  - Disease progression [Fatal]
